FAERS Safety Report 18823257 (Version 1)
Quarter: 2021Q1

REPORT INFORMATION
  Report Type: Spontaneous
  Country: CN (occurrence: CN)
  Receive Date: 20210201
  Receipt Date: 20210201
  Transmission Date: 20210419
  Serious: Yes (Other)
  Sender: FDA-Public Use
  Company Number: CN-BAXTER-2021BAX001845

PATIENT
  Age: 31 Year
  Sex: Male
  Weight: 63 kg

DRUGS (22)
  1. ETOPOSIDE. [Suspect]
     Active Substance: ETOPOSIDE
     Indication: B-CELL LYMPHOMA
     Dosage: 1 TO 2 CYCLES OF R?DAEPOCH
     Route: 065
  2. DOXORUBICIN HYDROCHLORIDE. [Suspect]
     Active Substance: DOXORUBICIN HYDROCHLORIDE
     Indication: B-CELL LYMPHOMA
     Dosage: 1 TO 2 CYCLES OF R?DAEPOCH
     Route: 065
  3. DOXORUBICIN HYDROCHLORIDE. [Suspect]
     Active Substance: DOXORUBICIN HYDROCHLORIDE
     Dosage: DOXORUBICIN HYDROCHLORIDE LIPOSOME (SELF PREPARED) + 5% GLUCOSE (GS)
     Route: 041
     Dates: start: 20201125, end: 20201125
  4. SODIUM CHLORIDE. [Suspect]
     Active Substance: SODIUM CHLORIDE
     Dosage: NS + CYCLOPHOSPHAMIDE 0.96 G
     Route: 041
     Dates: start: 20201130, end: 20201130
  5. 0.9% SODIUM CHLORIDE INJECTION [Suspect]
     Active Substance: SODIUM CHLORIDE
     Dosage: NS + RITUXIMAB 0.5 G
     Route: 041
     Dates: start: 20201124, end: 20201124
  6. METHOTREXATE. [Suspect]
     Active Substance: METHOTREXATE
     Indication: B-CELL LYMPHOMA
     Dosage: METHOTREXATE 5 ML [TOOK 2ML] + NS 100 ML
     Route: 037
     Dates: start: 20201123, end: 20201123
  7. RITUXIMAB. [Suspect]
     Active Substance: RITUXIMAB
     Indication: B-CELL LYMPHOMA
     Dosage: 1 TO 2 CYCLES OF R?DAEPOCH
     Route: 065
  8. ENDOXAN [Suspect]
     Active Substance: CYCLOPHOSPHAMIDE
     Dosage: CYCLOPHOSPHAMIDE + SODIUM CHLORIDE (NS) 100 ML
     Route: 041
     Dates: start: 20201130, end: 20201130
  9. 5% GLUCOSE  INJECTION [Suspect]
     Active Substance: DEXTROSE
     Dosage: 5% GS + DOXORUBICIN HYDROCHLORIDE LIPOSOME 20 MG.
     Route: 041
     Dates: start: 20201127, end: 20201127
  10. SAIDESA (CYTARABINE) [Suspect]
     Active Substance: CYTARABINE
     Indication: B-CELL LYMPHOMA
     Dosage: CYTARABINE 0.5 G [TOOK 1ML] + NS 10 ML
     Route: 037
     Dates: start: 20201123, end: 20201123
  11. ENDOXAN [Suspect]
     Active Substance: CYCLOPHOSPHAMIDE
     Indication: B-CELL LYMPHOMA
     Dosage: 1 TO 2 CYCLES OF R?DAEPOCH
     Route: 065
  12. 5% GLUCOSE  INJECTION [Suspect]
     Active Substance: DEXTROSE
     Indication: MEDICATION DILUTION
     Dosage: 5% GS + DOXORUBICIN HYDROCHLORIDE LIPOSOME 20 MG.
     Route: 041
     Dates: start: 20201125, end: 20201125
  13. ETOPOSIDE. [Suspect]
     Active Substance: ETOPOSIDE
     Dosage: ETOPOSIDE + NS 500 ML
     Route: 041
     Dates: start: 20201125, end: 20201128
  14. SODIUM CHLORIDE. [Suspect]
     Active Substance: SODIUM CHLORIDE
     Dosage: NS + ETOPOSIDE 3.2 ML
     Route: 041
     Dates: start: 20201125, end: 20201128
  15. RITUXIMAB. [Suspect]
     Active Substance: RITUXIMAB
     Dosage: RITUXIMAB (SELF PREPARED) + NS 90 ML
     Route: 041
     Dates: start: 20201124, end: 20201124
  16. RITUXIMAB. [Suspect]
     Active Substance: RITUXIMAB
     Dosage: RITUXIMAB (SELF PREPARED) + NS 450 ML
     Route: 041
     Dates: start: 20201124, end: 20201124
  17. SODIUM CHLORIDE. [Suspect]
     Active Substance: SODIUM CHLORIDE
     Indication: MEDICATION DILUTION
     Dosage: SODIUM CHLORIDE (NS) + CYTARABINE 0.5 G
     Route: 037
     Dates: start: 20201123, end: 20201123
  18. PREDNISONE. [Suspect]
     Active Substance: PREDNISONE
     Indication: B-CELL LYMPHOMA
     Dosage: 1 TO 2 CYCLES OF R?DAEPOCH
     Route: 065
  19. 0.9% SODIUM CHLORIDE INJECTION [Suspect]
     Active Substance: SODIUM CHLORIDE
     Indication: MEDICATION DILUTION
     Dosage: NS + RITUXIMAB 0.1 G
     Route: 041
     Dates: start: 20201124, end: 20201124
  20. DOXORUBICIN HYDROCHLORIDE. [Suspect]
     Active Substance: DOXORUBICIN HYDROCHLORIDE
     Dosage: DOXORUBICIN HYDROCHLORIDE LIPOSOME (SELF PREPARED) + 5% GLUCOSE (GS)
     Route: 041
     Dates: start: 20201127, end: 20201127
  21. SODIUM CHLORIDE. [Suspect]
     Active Substance: SODIUM CHLORIDE
     Dosage: NS + METHOTREXATE 5 ML
     Route: 037
     Dates: start: 20201123, end: 20201123
  22. VINCRISTINE SULFATE. [Suspect]
     Active Substance: VINCRISTINE SULFATE
     Indication: B-CELL LYMPHOMA
     Dosage: 1 TO 2 CYCLES OF R?DAEPOCH
     Route: 065

REACTIONS (2)
  - Leukopenia [Unknown]
  - Neutrophil count decreased [Unknown]

NARRATIVE: CASE EVENT DATE: 20201201
